FAERS Safety Report 6833439-5 (Version None)
Quarter: 2010Q3

REPORT INFORMATION
  Report Type: 
  Country: None (occurrence: None)
  Receive Date: 20100712
  Receipt Date: 20070321
  Transmission Date: 20110219
  Serious: No
  Sender: FDA-Public Use
  Company Number: US-PFIZER INC-2007022568

PATIENT
  Sex: Female
  Weight: 58.97 kg

DRUGS (4)
  1. CHANTIX [Suspect]
     Indication: SMOKING CESSATION THERAPY
     Dates: start: 20070316, end: 20070318
  2. LAMICTAL [Concomitant]
  3. TEMAZEPAM [Concomitant]
  4. SEROQUEL [Concomitant]

REACTIONS (2)
  - INSOMNIA [None]
  - PRURITUS [None]
